FAERS Safety Report 8990842 (Version 1)
Quarter: 2012Q4

REPORT INFORMATION
  Report Type: 
  Country: PT (occurrence: PT)
  Receive Date: 20121231
  Receipt Date: 20121231
  Transmission Date: 20130627
  Serious: Yes (Other)
  Sender: FDA-Public Use
  Company Number: PHHY2012PT120399

PATIENT
  Age: 55 None
  Sex: Female
  Weight: 53 kg

DRUGS (2)
  1. VOLTAREN [Suspect]
     Indication: RENAL COLIC
     Dosage: 75 mg, QD
     Route: 030
     Dates: start: 20121115, end: 20121115
  2. PERMADOZE [Concomitant]
     Indication: VITAMIN B12 DEFICIENCY
     Route: 030

REACTIONS (4)
  - Gait disturbance [Recovered/Resolved]
  - Pain in extremity [Recovered/Resolved]
  - Muscular weakness [Recovered/Resolved]
  - Administration site pain [Recovered/Resolved]
